FAERS Safety Report 8922339 (Version 1)
Quarter: 2012Q4

REPORT INFORMATION
  Report Type: 
  Country: IE (occurrence: PT)
  Receive Date: 20121123
  Receipt Date: 20121123
  Transmission Date: 20130627
  Serious: Yes (Hospitalization)
  Sender: FDA-Public Use
  Company Number: IE-JNJFOC-20121110395

PATIENT
  Age: 33 Year
  Sex: Female

DRUGS (3)
  1. IMODIUM [Suspect]
     Indication: ABDOMINAL DISCOMFORT
     Route: 048
     Dates: start: 20120915, end: 20120915
  2. IMODIUM [Suspect]
     Indication: DIARRHOEA
     Route: 048
     Dates: start: 20120915, end: 20120915
  3. MIRENA [Concomitant]
     Indication: CONTRACEPTION
     Route: 015
     Dates: start: 20080903

REACTIONS (1)
  - Muscle spasms [Recovered/Resolved]
